FAERS Safety Report 17786382 (Version 2)
Quarter: 2020Q2

REPORT INFORMATION
  Report Type: Spontaneous
  Country: IT (occurrence: IT)
  Receive Date: 20200514
  Receipt Date: 20200529
  Transmission Date: 20200714
  Serious: No
  Sender: FDA-Public Use
  Company Number: IT-ELI_LILLY_AND_COMPANY-IT202005003988

PATIENT
  Age: 67 Year
  Sex: Female

DRUGS (1)
  1. OLANZAPINE. [Suspect]
     Active Substance: OLANZAPINE
     Indication: BIPOLAR I DISORDER
     Dosage: 2.5 MG, DAILY
     Route: 048
     Dates: start: 20190303, end: 20200208

REACTIONS (1)
  - Anaemia macrocytic [Unknown]

NARRATIVE: CASE EVENT DATE: 20200206
